FAERS Safety Report 7995469-X (Version None)
Quarter: 2011Q4

REPORT INFORMATION
  Report Type: 
  Country: None (occurrence: None)
  Receive Date: 20111217
  Receipt Date: 20111217
  Transmission Date: 20120403
  Serious: No
  Sender: FDA-Public Use
  Company Number: None

PATIENT
  Sex: Male

DRUGS (1)
  1. HYDROXYZINE HCL [Suspect]
     Dosage: ORAL TABLET 100MG
     Route: 048

REACTIONS (6)
  - HEADACHE [None]
  - ABDOMINAL PAIN UPPER [None]
  - WRONG DRUG ADMINISTERED [None]
  - DIZZINESS [None]
  - MEDICATION ERROR [None]
  - VOMITING [None]
